FAERS Safety Report 7339688-4 (Version None)
Quarter: 2011Q1

REPORT INFORMATION
  Report Type: 
  Country: None (occurrence: None)
  Receive Date: 20110303
  Receipt Date: 20110303
  Transmission Date: 20110831
  Serious: No
  Sender: FDA-Public Use
  Company Number: None

PATIENT
  Age: 56 Year
  Sex: Female
  Weight: 50.8029 kg

DRUGS (1)
  1. POLYETHYLENE GLYCOL 3350 [Suspect]
     Indication: CONSTIPATION
     Dosage: 17 GRAMS TWICE A DAY AT LEAST A WEEK

REACTIONS (3)
  - RECTAL OBSTRUCTION [None]
  - PAINFUL DEFAECATION [None]
  - HAEMORRHAGE [None]
